FAERS Safety Report 10012962 (Version 1)
Quarter: 2014Q1

REPORT INFORMATION
  Report Type: Report from Study
  Country: US (occurrence: US)
  Receive Date: 20140314
  Receipt Date: 20140314
  Transmission Date: 20141002
  Serious: Yes (Disabling)
  Sender: FDA-Public Use
  Company Number: US-009507513-1403USA003367

PATIENT
  Age: 59 Year
  Sex: Male

DRUGS (3)
  1. TEMOZOLOMIDE [Suspect]
     Indication: GLIOBLASTOMA MULTIFORME
     Dosage: CYCLE 1, DAY 1
     Route: 048
     Dates: start: 20131216, end: 20131216
  2. ABT-414 [Suspect]
     Indication: GLIOBLASTOMA MULTIFORME
     Dosage: CYCLE 1, DAY 1
     Route: 042
     Dates: start: 20131216, end: 20131216
  3. ABT-414 [Suspect]
     Dosage: CYCLE 1, DAY 15
     Route: 042
     Dates: start: 20131230, end: 20131230

REACTIONS (1)
  - Keratitis [Unknown]
